FAERS Safety Report 18389719 (Version 1)
Quarter: 2020Q4

REPORT INFORMATION
  Report Type: Spontaneous
  Country: US (occurrence: US)
  Receive Date: 20201015
  Receipt Date: 20201015
  Transmission Date: 20210114
  Serious: Yes (Other)
  Sender: FDA-Public Use
  Company Number: US-ALLERGAN-2039610US

PATIENT
  Sex: Female

DRUGS (5)
  1. PREDNISOLONE UNK [Suspect]
     Active Substance: PREDNISOLONE
     Indication: CORNEAL DEGENERATION
     Dosage: SLOWLY TAPERED TO ONCE A DAY
     Route: 047
  2. PREDNISOLONE UNK [Suspect]
     Active Substance: PREDNISOLONE
     Dosage: 4 TIMES DAILY
     Route: 047
  3. PREDNISOLONE UNK [Suspect]
     Active Substance: PREDNISOLONE
     Dosage: 6 TIMES DAILY
     Route: 047
  4. PREDNISOLONE UNK [Suspect]
     Active Substance: PREDNISOLONE
     Dosage: 4 TIMES DAILY
     Route: 047
  5. PREDNISOLONE UNK [Suspect]
     Active Substance: PREDNISOLONE
     Dosage: 8 TIMES DAILY
     Route: 047

REACTIONS (4)
  - Treatment noncompliance [Unknown]
  - Ocular hypertension [Recovered/Resolved]
  - Corneal endotheliitis [Recovered/Resolved]
  - Cytomegalovirus infection [Recovered/Resolved]
